FAERS Safety Report 7247556-1 (Version None)
Quarter: 2011Q1

REPORT INFORMATION
  Report Type: 
  Country: None (occurrence: None)
  Receive Date: 20110127
  Receipt Date: 20110110
  Transmission Date: 20110831
  Serious: Yes (Other)
  Sender: FDA-Public Use
  Company Number: US-ROCHE-755221

PATIENT
  Sex: Female

DRUGS (3)
  1. PACLITAXEL [Suspect]
     Route: 065
  2. CARBOPLATIN [Suspect]
     Route: 065
  3. HERCEPTIN [Suspect]
     Route: 065

REACTIONS (4)
  - TROPONIN INCREASED [None]
  - VOMITING [None]
  - PAIN IN EXTREMITY [None]
  - HEART INJURY [None]
